FAERS Safety Report 6886206-0 (Version None)
Quarter: 2010Q3

REPORT INFORMATION
  Report Type: 
  Country: None (occurrence: None)
  Receive Date: 20100729
  Receipt Date: 20090507
  Transmission Date: 20110219
  Serious: Yes (Other)
  Sender: FDA-Public Use
  Company Number: US-PFIZER INC-2008036692

PATIENT
  Sex: Male
  Weight: 87.272 kg

DRUGS (4)
  1. CELEBREX [Suspect]
  2. VITAMINS [Concomitant]
  3. COUMADIN [Concomitant]
  4. TOPROL-XL [Concomitant]

REACTIONS (3)
  - RASH [None]
  - SWELLING [None]
  - WEIGHT INCREASED [None]
